FAERS Safety Report 24976727 (Version 1)
Quarter: 2025Q1

REPORT INFORMATION
  Report Type: Spontaneous
  Country: FR (occurrence: FR)
  Receive Date: 20250217
  Receipt Date: 20250217
  Transmission Date: 20250409
  Serious: Yes (Hospitalization)
  Sender: MYLAN
  Company Number: None

PATIENT
  Age: 64 Year
  Sex: Female
  Weight: 82 kg

DRUGS (4)
  1. BUSPIRONE [Interacting]
     Active Substance: BUSPIRONE HYDROCHLORIDE
     Indication: Depression
     Dosage: 20 MILLIGRAM, QD
     Route: 048
  2. FLUOXETINE [Interacting]
     Active Substance: FLUOXETINE HYDROCHLORIDE
     Indication: Depression
     Dosage: 40 MILLIGRAM, QD
     Route: 048
  3. ELETRIPTAN [Interacting]
     Active Substance: ELETRIPTAN
     Indication: Migraine
     Route: 048
     Dates: start: 20250103, end: 20250103
  4. TOPIRAMATE [Concomitant]
     Active Substance: TOPIRAMATE
     Dosage: 100 MILLIGRAM, QD
     Route: 048

REACTIONS (2)
  - Retinal artery occlusion [Recovered/Resolved]
  - Drug interaction [Recovered/Resolved]

NARRATIVE: CASE EVENT DATE: 20250103
